FAERS Safety Report 25342092 (Version 1)
Quarter: 2025Q2

REPORT INFORMATION
  Report Type: Spontaneous
  Country: US (occurrence: None)
  Receive Date: 20250519
  Receipt Date: 20250519
  Transmission Date: 20250717
  Serious: Yes (Disabling)
  Sender: FDA-CTU
  Company Number: None

PATIENT
  Age: 72 Year
  Sex: Female
  Weight: 53.55 kg

DRUGS (6)
  1. ESCITALOPRAM OXALATE [Suspect]
     Active Substance: ESCITALOPRAM OXALATE
     Indication: Depression
     Dosage: 90 MG DAILY ORAL
     Route: 048
     Dates: start: 20231203, end: 20250124
  2. irbesarten [Concomitant]
  3. AMLODIPINE [Concomitant]
     Active Substance: AMLODIPINE BESYLATE
  4. simvisaten [Concomitant]
  5. pantoproprazole [Concomitant]
  6. CALCIUM\VITAMIN D [Concomitant]
     Active Substance: CALCIUM\VITAMIN D

REACTIONS (8)
  - Diarrhoea [None]
  - Weight decreased [None]
  - Dehydration [None]
  - Loss of consciousness [None]
  - Fall [None]
  - Clavicle fracture [None]
  - Shoulder fracture [None]
  - Rib fracture [None]

NARRATIVE: CASE EVENT DATE: 20250107
